FAERS Safety Report 6415804-3 (Version None)
Quarter: 2009Q4

REPORT INFORMATION
  Report Type: 
  Country: None (occurrence: None)
  Receive Date: 20091027
  Receipt Date: 20091015
  Transmission Date: 20100525
  Serious: Yes (Other)
  Sender: FDA-Public Use
  Company Number: ES-PFIZER INC-2009283604

PATIENT
  Age: 33 Year

DRUGS (4)
  1. ZYVOXID [Suspect]
     Indication: LUNG ABSCESS
     Dosage: 600 MG, 2X/DAY
     Route: 042
     Dates: start: 20090505, end: 20090519
  2. AMIKACIN [Suspect]
     Indication: LUNG ABSCESS
     Dosage: 1 G, 1X/DAY
     Route: 042
     Dates: start: 20090505, end: 20090508
  3. MEROPENEM [Suspect]
     Indication: LUNG ABSCESS
     Dosage: 1 G, 3X/DAY
     Route: 042
     Dates: start: 20090505, end: 20090519
  4. COTRIM [Concomitant]
     Indication: LUNG ABSCESS
     Dosage: UNK
     Dates: start: 20090505

REACTIONS (1)
  - HEPATITIS ACUTE [None]
